FAERS Safety Report 21309385 (Version 1)
Quarter: 2022Q3

REPORT INFORMATION
  Report Type: Spontaneous
  Country: US (occurrence: US)
  Receive Date: 20220908
  Receipt Date: 20220908
  Transmission Date: 20221027
  Serious: No
  Sender: FDA-Public Use
  Company Number: US-BRAINTREE LABORATORIES, INC.-2022BTE00375

PATIENT
  Sex: Female
  Weight: 90.718 kg

DRUGS (6)
  1. SUPREP BOWEL PREP [Suspect]
     Active Substance: MAGNESIUM SULFATE\POTASSIUM SULFATE\SODIUM SULFATE
     Indication: Colonoscopy
     Dosage: 2 X 6 OZ. BOTTLE 1X
     Route: 048
     Dates: start: 20220426, end: 20220427
  2. UNSPECIFIED INGREDIENT [Concomitant]
     Active Substance: UNSPECIFIED INGREDIENT
  3. GABAPENTIN [Concomitant]
     Active Substance: GABAPENTIN
  4. ULORIC [Concomitant]
     Active Substance: FEBUXOSTAT
  5. COLCRYS [Concomitant]
     Active Substance: COLCHICINE
     Dosage: UNK, 2X/DAY
  6. UNSPECIFICED MEDICATION [Concomitant]

REACTIONS (2)
  - Peripheral swelling [Recovering/Resolving]
  - Pain in extremity [Unknown]

NARRATIVE: CASE EVENT DATE: 20220101
